FAERS Safety Report 23702856 (Version 1)
Quarter: 2024Q2

REPORT INFORMATION
  Report Type: Spontaneous
  Country: US (occurrence: US)
  Receive Date: 20240403
  Receipt Date: 20240403
  Transmission Date: 20240716
  Serious: No
  Sender: FDA-Public Use
  Company Number: US-BIOVITRUM-2024-US-004947

PATIENT
  Age: 71 Year
  Sex: Female

DRUGS (2)
  1. VONJO [Suspect]
     Active Substance: PACRITINIB
     Indication: Myelofibrosis
     Dosage: 200MG TWICE A DAY
     Route: 048
     Dates: start: 20240322
  2. VONJO [Suspect]
     Active Substance: PACRITINIB
     Dosage: 100MG TWICE A DAY
     Route: 048
     Dates: start: 20240322

REACTIONS (4)
  - Diarrhoea [Unknown]
  - Nausea [Unknown]
  - Dyspepsia [Unknown]
  - Product use issue [Unknown]
